FAERS Safety Report 9857818 (Version 1)
Quarter: 2014Q1

REPORT INFORMATION
  Report Type: Spontaneous
  Country: FR (occurrence: FR)
  Receive Date: 20140131
  Receipt Date: 20140131
  Transmission Date: 20141002
  Serious: Yes (Hospitalization, Other)
  Sender: FDA-Public Use
  Company Number: FR-BRISTOL-MYERS SQUIBB COMPANY-20076170

PATIENT
  Age: 68 Year
  Sex: Male

DRUGS (6)
  1. ABILIFY [Suspect]
     Route: 048
  2. RISPERDAL [Interacting]
     Dosage: SCORED FILM-COATED TABLET
     Route: 048
     Dates: start: 20131201, end: 20131204
  3. HALDOL DECANOATE [Interacting]
     Dosage: HALDOL DECANOAS SOLUTION FOR INJECTION
     Route: 030
     Dates: start: 20131127
  4. STILNOX [Interacting]
     Dosage: STILNOX 10 MG, SCORED FILM-COATED TABLET
     Route: 048
  5. DEPAMIDE [Interacting]
     Route: 048
  6. PROZAC [Interacting]
     Route: 048
     Dates: start: 20131122, end: 20131204

REACTIONS (5)
  - Confusional state [Recovering/Resolving]
  - Pneumonia aspiration [Recovering/Resolving]
  - Psychomotor skills impaired [Recovering/Resolving]
  - Hyponatraemia [Recovering/Resolving]
  - Drug interaction [Unknown]
